FAERS Safety Report 12834010 (Version 6)
Quarter: 2017Q2

REPORT INFORMATION
  Report Type: Spontaneous
  Country: US (occurrence: US)
  Receive Date: 20161010
  Receipt Date: 20170515
  Transmission Date: 20170830
  Serious: Yes (Other)
  Sender: FDA-Public Use
  Company Number: US-JNJFOC-20161005869

PATIENT
  Sex: Female

DRUGS (17)
  1. TRAMADOL HYDROCHLORIDE. [Suspect]
     Active Substance: TRAMADOL HYDROCHLORIDE
     Indication: PAIN
     Route: 048
  2. XYREM [Suspect]
     Active Substance: SODIUM OXYBATE
     Indication: CATAPLEXY
     Route: 048
     Dates: start: 201103, end: 201103
  3. XYREM [Suspect]
     Active Substance: SODIUM OXYBATE
     Indication: CATAPLEXY
     Dosage: SECOND DOSE
     Route: 048
     Dates: start: 201111
  4. NUVIGIL [Suspect]
     Active Substance: ARMODAFINIL
     Indication: PRODUCT USED FOR UNKNOWN INDICATION
     Route: 065
  5. PERCOCET [Suspect]
     Active Substance: ACETAMINOPHEN\OXYCODONE HYDROCHLORIDE
     Indication: PAIN
     Route: 065
  6. XYREM [Suspect]
     Active Substance: SODIUM OXYBATE
     Indication: CATAPLEXY
     Dosage: FIRST DOSE
     Route: 048
     Dates: start: 201111
  7. PROPRANOLOL [Concomitant]
     Active Substance: PROPRANOLOL HYDROCHLORIDE
     Indication: PRODUCT USED FOR UNKNOWN INDICATION
     Route: 065
  8. XYREM [Suspect]
     Active Substance: SODIUM OXYBATE
     Indication: CATAPLEXY
     Route: 048
     Dates: start: 201610
  9. XYREM [Suspect]
     Active Substance: SODIUM OXYBATE
     Indication: CATAPLEXY
     Route: 048
     Dates: start: 201103, end: 2011
  10. MIRENA [Concomitant]
     Active Substance: LEVONORGESTREL
     Indication: PRODUCT USED FOR UNKNOWN INDICATION
     Route: 065
  11. NAPROXEN. [Concomitant]
     Active Substance: NAPROXEN
     Indication: PAIN
     Route: 065
  12. NAPROXEN. [Concomitant]
     Active Substance: NAPROXEN
     Indication: MIGRAINE
     Route: 065
  13. EFFEXOR [Concomitant]
     Active Substance: VENLAFAXINE HYDROCHLORIDE
     Indication: PRODUCT USED FOR UNKNOWN INDICATION
     Route: 065
  14. SANCTURA [Suspect]
     Active Substance: TROSPIUM CHLORIDE
     Indication: PRODUCT USED FOR UNKNOWN INDICATION
     Route: 065
  15. XYREM [Suspect]
     Active Substance: SODIUM OXYBATE
     Indication: CATAPLEXY
     Dosage: THIRD DOSE
     Route: 048
     Dates: start: 201111
  16. MELATONIN [Concomitant]
     Active Substance: MELATONIN
     Indication: PRODUCT USED FOR UNKNOWN INDICATION
     Route: 065
  17. DILAUDID [Suspect]
     Active Substance: HYDROMORPHONE HYDROCHLORIDE
     Indication: PAIN
     Route: 065

REACTIONS (18)
  - Anticholinergic syndrome [Unknown]
  - Thyroid neoplasm [Not Recovered/Not Resolved]
  - Concussion [Unknown]
  - Migraine [Not Recovered/Not Resolved]
  - Restlessness [Unknown]
  - Constipation [Unknown]
  - Enuresis [Recovered/Resolved]
  - Blood prolactin increased [Not Recovered/Not Resolved]
  - Somnambulism [Unknown]
  - Nephrolithiasis [Unknown]
  - Sleep terror [Unknown]
  - Urticaria [Unknown]
  - Pituitary tumour [Not Recovered/Not Resolved]
  - Contusion [Unknown]
  - Wrong technique in product usage process [Unknown]
  - Pain [Unknown]
  - Fall [Recovered/Resolved]
  - Sleep-related eating disorder [Unknown]

NARRATIVE: CASE EVENT DATE: 2011
